FAERS Safety Report 15439309 (Version 3)
Quarter: 2019Q3

REPORT INFORMATION
  Report Type: Report from Study
  Country: US (occurrence: US)
  Receive Date: 20180928
  Receipt Date: 20190930
  Transmission Date: 20191004
  Serious: No
  Sender: FDA-Public Use
  Company Number: PHHY2018US111541

PATIENT
  Sex: Female

DRUGS (1)
  1. COSENTYX [Suspect]
     Active Substance: SECUKINUMAB
     Indication: PATERNAL EXPOSURE TIMING UNSPECIFIED
     Dosage: 300 MG, QMO
     Route: 050
     Dates: start: 2017

REACTIONS (1)
  - Exposure via partner [Unknown]
